FAERS Safety Report 6493259-0 (Version None)
Quarter: 2009Q4

REPORT INFORMATION
  Report Type: 
  Country: None (occurrence: None)
  Receive Date: 20091214
  Receipt Date: 20091208
  Transmission Date: 20100525
  Serious: Yes (Other)
  Sender: FDA-Public Use
  Company Number: JP-JNJFOC-20091005336

PATIENT
  Sex: Male

DRUGS (7)
  1. ITRIZOLE [Suspect]
     Indication: DRUG USE FOR UNKNOWN INDICATION
     Route: 048
  2. ITRIZOLE [Suspect]
     Route: 048
  3. HYDROCORTISONE BUTYRATE [Concomitant]
     Route: 061
  4. WHITE PETROLATUM [Concomitant]
     Route: 065
  5. LULICONAZOLE [Concomitant]
     Route: 061
  6. LULICONAZOLE [Concomitant]
     Route: 061
  7. WHITE PETROLATUM [Concomitant]
     Indication: LICHEN PLANUS
     Route: 061

REACTIONS (3)
  - EOSINOPHILIA [None]
  - LYMPHOCYTE MORPHOLOGY ABNORMAL [None]
  - MONOCYTE COUNT INCREASED [None]
